FAERS Safety Report 4772584-5 (Version None)
Quarter: 2005Q3

REPORT INFORMATION
  Report Type: 
  Country: None (occurrence: None)
  Receive Date: 20050914
  Receipt Date: 20041116
  Transmission Date: 20060218
  Serious: Yes (Other)
  Sender: FDA-Public Use
  Company Number: 163-20785-04110388

PATIENT
  Age: 61 Year
  Sex: Male

DRUGS (3)
  1. THALOMID [Suspect]
     Indication: PROSTATE CANCER METASTATIC
     Dosage: 300 MG, DAILY, ORAL
     Route: 048
     Dates: start: 20031106, end: 20040914
  2. PREDNISONE [Concomitant]
  3. TAXOTERE [Concomitant]

REACTIONS (4)
  - CONSTIPATION [None]
  - LISTLESS [None]
  - NEUROTOXICITY [None]
  - NIGHTMARE [None]
